FAERS Safety Report 9265143 (Version 1)
Quarter: 2013Q2

REPORT INFORMATION
  Report Type: Spontaneous
  Country: US (occurrence: None)
  Receive Date: 20130430
  Receipt Date: 20130430
  Transmission Date: 20140414
  Serious: No
  Sender: FDA-Public Use
  Company Number: None

PATIENT
  Age: 78 Year
  Sex: Male
  Weight: 120 kg

DRUGS (1)
  1. SILDENAFIL [Suspect]
     Route: 048
     Dates: start: 20040514, end: 20040419

REACTIONS (1)
  - Treatment failure [None]
